FAERS Safety Report 4458143-2 (Version None)
Quarter: 2004Q3

REPORT INFORMATION
  Report Type: 
  Country: None (occurrence: None)
  Receive Date: 20040924
  Receipt Date: 20040915
  Transmission Date: 20050211
  Serious: Yes (Death)
  Sender: FDA-Public Use
  Company Number: ZA-GLAXOSMITHKLINE-B0345800A

PATIENT
  Age: 36 Year
  Sex: Female

DRUGS (2)
  1. LAMICTIN [Suspect]
     Indication: EPILEPSY
     Dosage: 50MG TWICE PER DAY
     Route: 048
  2. VENLAFAXINE HCL [Concomitant]
     Dosage: 755MG PER DAY

REACTIONS (1)
  - SUDDEN DEATH [None]
